FAERS Safety Report 13477687 (Version 1)
Quarter: 2017Q2

REPORT INFORMATION
  Report Type: Spontaneous
  Country: GB (occurrence: GB)
  Receive Date: 20170425
  Receipt Date: 20170425
  Transmission Date: 20170830
  Serious: Yes (Hospitalization)
  Sender: FDA-Public Use
  Company Number: GB-TEVA-760862ACC

PATIENT
  Age: 84 Year
  Sex: Male

DRUGS (10)
  1. FEXOFENADINE [Suspect]
     Active Substance: FEXOFENADINE\FEXOFENADINE HYDROCHLORIDE
     Indication: URTICARIA
     Dosage: 180 MILLIGRAM DAILY;
     Route: 048
     Dates: start: 20170111, end: 20170307
  2. RAMIPRIL. [Concomitant]
     Active Substance: RAMIPRIL
  3. CROTAMITON [Concomitant]
     Active Substance: CROTAMITON
  4. REFRESH CELLUVISC [Concomitant]
     Active Substance: CARBOXYMETHYLCELLULOSE SODIUM
  5. GLICLAZIDE [Concomitant]
     Active Substance: GLICLAZIDE
  6. ATENOLOL. [Concomitant]
     Active Substance: ATENOLOL
  7. LINAGLIPTIN [Concomitant]
     Active Substance: LINAGLIPTIN
  8. ADCAL-D3 [Concomitant]
     Active Substance: CALCIUM CARBONATE\CHOLECALCIFEROL
  9. SIMVASTATIN. [Concomitant]
     Active Substance: SIMVASTATIN
  10. TAMSULOSIN [Concomitant]
     Active Substance: TAMSULOSIN

REACTIONS (1)
  - Liver function test increased [Recovering/Resolving]

NARRATIVE: CASE EVENT DATE: 20170306
